FAERS Safety Report 8843031 (Version 1)
Quarter: 2012Q4

REPORT INFORMATION
  Report Type: 
  Country: US (occurrence: US)
  Receive Date: 20121016
  Receipt Date: 20121016
  Transmission Date: 20130627
  Serious: Yes (Other)
  Sender: FDA-Public Use
  Company Number: US-GLAXOSMITHKLINE-A0996683A

PATIENT
  Sex: Female

DRUGS (4)
  1. LAMICTAL [Suspect]
     Indication: BIPOLAR DISORDER
  2. LITHIUM [Concomitant]
  3. ESTROGEN [Concomitant]
  4. RITALIN [Concomitant]

REACTIONS (15)
  - Cerebrovascular accident [Not Recovered/Not Resolved]
  - Abasia [Unknown]
  - Speech disorder [Unknown]
  - Back pain [Unknown]
  - Asthenia [Unknown]
  - Fatigue [Unknown]
  - Muscular weakness [Unknown]
  - Dizziness [Unknown]
  - Migraine [Unknown]
  - Abdominal pain [Unknown]
  - Vision blurred [Unknown]
  - Incontinence [Unknown]
  - Weight decreased [Unknown]
  - Muscle atrophy [Unknown]
  - Gait disturbance [Unknown]
